FAERS Safety Report 4499757-3 (Version None)
Quarter: 2004Q4

REPORT INFORMATION
  Report Type: 
  Country: None (occurrence: None)
  Receive Date: 20041108
  Receipt Date: 20041025
  Transmission Date: 20050328
  Serious: Yes (Death, Hospitalization)
  Sender: FDA-Public Use
  Company Number: 2004AP03581

PATIENT
  Age: 61 Year
  Sex: Male

DRUGS (12)
  1. IRESSA [Suspect]
     Indication: LUNG ADENOCARCINOMA
     Dosage: 250 MG DAILY PO
     Route: 048
     Dates: start: 20030507, end: 20031005
  2. IRESSA [Suspect]
     Indication: LUNG ADENOCARCINOMA
     Dosage: 250 MG QOD PO
     Route: 048
     Dates: start: 20031111, end: 20031201
  3. RADIATION THERAPY [Concomitant]
  4. VINORELBINE [Concomitant]
  5. HEAVY MAGNESIUM OXIDE [Concomitant]
  6. RHYTHMY [Concomitant]
  7. NAIXAN [Concomitant]
  8. RINDERON [Concomitant]
  9. LANSOPRAZOLE [Concomitant]
  10. ALFAROL [Concomitant]
  11. CALCIUM LACTATE [Concomitant]
  12. DUROTEP JANSSEN [Concomitant]

REACTIONS (16)
  - ABDOMINAL PAIN [None]
  - CARCINOEMBRYONIC ANTIGEN INCREASED [None]
  - CARCINOMA [None]
  - CONDITION AGGRAVATED [None]
  - DEHYDRATION [None]
  - DEPRESSED LEVEL OF CONSCIOUSNESS [None]
  - DIARRHOEA [None]
  - DRUG INEFFECTIVE [None]
  - LOSS OF CONSCIOUSNESS [None]
  - LUNG DISORDER [None]
  - MENINGITIS [None]
  - NAUSEA [None]
  - PERITONITIS [None]
  - PNEUMONITIS [None]
  - PURULENCE [None]
  - VOMITING [None]
